FAERS Safety Report 13871006 (Version 1)
Quarter: 2017Q3

REPORT INFORMATION
  Report Type: Spontaneous
  Country: GB (occurrence: GB)
  Receive Date: 20170816
  Receipt Date: 20170816
  Transmission Date: 20171127
  Serious: Yes (Other)
  Sender: FDA-Public Use
  Company Number: GB-GLAXOSMITHKLINE-GB2017GSK126736

PATIENT
  Sex: Female

DRUGS (2)
  1. VENTOLIN [Suspect]
     Active Substance: ALBUTEROL SULFATE
     Dosage: 5 MG, UNK
  2. VENTOLIN [Suspect]
     Active Substance: ALBUTEROL SULFATE
     Indication: BRONCHOSPASM
     Dosage: 2.5 MG, UNK

REACTIONS (3)
  - Optic nerve injury [Unknown]
  - Circumstance or information capable of leading to medication error [Unknown]
  - Product quality issue [Unknown]
